FAERS Safety Report 7815096-4 (Version None)
Quarter: 2011Q4

REPORT INFORMATION
  Report Type: 
  Country: None (occurrence: None)
  Receive Date: 20111014
  Receipt Date: 20111014
  Transmission Date: 20120403
  Serious: Yes (Other)
  Sender: FDA-Public Use
  Company Number: None

PATIENT
  Age: 13 Year
  Sex: Female
  Weight: 59.8 kg

DRUGS (4)
  1. METHOTREXATE [Concomitant]
     Route: 037
  2. VINCRISTINE [Concomitant]
     Route: 042
  3. GRANISETRON [Concomitant]
  4. PEGASPARGASE [Suspect]

REACTIONS (4)
  - OCULAR HYPERAEMIA [None]
  - CONJUNCTIVITIS [None]
  - SWELLING FACE [None]
  - FLUSHING [None]
